FAERS Safety Report 12202087 (Version 1)
Quarter: 2016Q1

REPORT INFORMATION
  Report Type: Spontaneous
  Country: DE (occurrence: DE)
  Receive Date: 20160322
  Receipt Date: 20160322
  Transmission Date: 20160526
  Serious: Yes (Other)
  Sender: FDA-Public Use
  Company Number: GXKR2016DE001442

PATIENT

DRUGS (3)
  1. CASTOR OIL. [Concomitant]
     Active Substance: CASTOR OIL
     Indication: LABOUR INDUCTION
     Dosage: INTRAPARTUM
     Route: 064
  2. QUETIAPINE [Suspect]
     Active Substance: QUETIAPINE
     Indication: MANIA
     Dosage: 300 MG/DAY; THEN 200 MG/DAY UNTIL GW 26 - 150 MG/D UNTIL DELIVERY
     Route: 064
     Dates: start: 20150114, end: 20151025
  3. FOLSAEURE [Concomitant]
     Active Substance: FOLIC ACID
     Indication: PROPHYLAXIS OF NEURAL TUBE DEFECT
     Dosage: GW 0-39.1
     Route: 064

REACTIONS (3)
  - Small for dates baby [Recovered/Resolved]
  - Hypoglycaemia neonatal [Recovered/Resolved]
  - Temperature regulation disorder [Recovered/Resolved]

NARRATIVE: CASE EVENT DATE: 20151025
